FAERS Safety Report 5692787-5 (Version None)
Quarter: 2008Q2

REPORT INFORMATION
  Report Type: 
  Country: None (occurrence: None)
  Receive Date: 20080402
  Receipt Date: 20080324
  Transmission Date: 20081010
  Serious: Yes (Life-Threatening)
  Sender: FDA-Public Use
  Company Number: US-BAXTER-2008BH002750

PATIENT
  Age: 14 Month
  Sex: Female

DRUGS (5)
  1. SUPRANE [Suspect]
     Indication: GENERAL ANAESTHESIA
     Route: 055
  2. RAPACURONIUM BROMIDE [Concomitant]
     Indication: ANAESTHESIA
     Dosage: DOSE UNIT:UNKNOWN
     Route: 065
  3. LIDOCAINE [Concomitant]
     Indication: ANAESTHESIA
     Dosage: DOSE UNIT:UNKNOWN
     Route: 065
  4. PROPOFOL [Concomitant]
     Indication: ANAESTHESIA
     Dosage: DOSE UNIT:UNKNOWN
     Route: 065
  5. SEVOFLURANE [Concomitant]
     Indication: ANAESTHESIA
     Dosage: DOSE UNIT:UNKNOWN
     Route: 065

REACTIONS (2)
  - CARDIAC ARREST [None]
  - OXYGEN SATURATION DECREASED [None]
